FAERS Safety Report 7721608-1 (Version None)
Quarter: 2011Q3

REPORT INFORMATION
  Report Type: 
  Country: None (occurrence: None)
  Receive Date: 20110831
  Receipt Date: 20110816
  Transmission Date: 20111222
  Serious: Yes (Other)
  Sender: FDA-Public Use
  Company Number: TR-JNJFOC-20110813062

PATIENT
  Sex: Female

DRUGS (2)
  1. CIRRUS [Suspect]
     Route: 048
  2. CIRRUS [Suspect]
     Indication: RHINITIS ALLERGIC
     Dosage: ONE TABLET ONCE A DAY
     Route: 048
     Dates: start: 20110718, end: 20110721

REACTIONS (1)
  - HALLUCINATION [None]
